FAERS Safety Report 12970576 (Version 1)
Quarter: 2016Q4

REPORT INFORMATION
  Report Type: Spontaneous
  Country: US (occurrence: US)
  Receive Date: 20161123
  Receipt Date: 20161123
  Transmission Date: 20170207
  Serious: Yes (Other)
  Sender: FDA-Public Use
  Company Number: US-PRINSTON PHARMACEUTICAL INC.-2016PRN00316

PATIENT
  Age: 77 Year
  Sex: Female
  Weight: 58.5 kg

DRUGS (5)
  1. LISINOPRIL. [Suspect]
     Active Substance: LISINOPRIL
     Indication: HYPERTENSION
     Dosage: 20 MG, 1X/DAY
     Route: 048
     Dates: start: 2014
  2. TRIAMTERENE AND HYDROCHLOROTHIAZIDE [Suspect]
     Active Substance: HYDROCHLOROTHIAZIDE\TRIAMTERENE
     Indication: HYPERTENSION
     Dosage: 1 TABLETS, 1X/DAY
     Route: 048
     Dates: start: 20161102
  3. RESERVEAGE KERATIN BOOSTER [Concomitant]
     Dosage: UNK
     Dates: start: 201602
  4. UNSPECIFIED MEDICATIONS FOR DIABETES [Concomitant]
     Dosage: UNK
  5. ALLOPURINOL (MYLAN) [Concomitant]
     Dosage: UNK

REACTIONS (3)
  - Hypertension [Recovered/Resolved]
  - Asthenia [Recovered/Resolved]
  - Alopecia [Recovering/Resolving]

NARRATIVE: CASE EVENT DATE: 20161028
